FAERS Safety Report 17342872 (Version 1)
Quarter: 2020Q1

REPORT INFORMATION
  Report Type: Spontaneous
  Country: US (occurrence: US)
  Receive Date: 20200129
  Receipt Date: 20200129
  Transmission Date: 20200409
  Serious: No
  Sender: FDA-Public Use
  Company Number: US-ALLERGAN-1909755US

PATIENT
  Sex: Female

DRUGS (1)
  1. BOTOX [Suspect]
     Active Substance: ONABOTULINUMTOXINA
     Indication: SKIN WRINKLING
     Dosage: ACTUAL: PROCERUS 5 UNITS, LEFT CORRUGATOR MUSCLE MEDIAL 5 UNITS, RIGHT CORRUGATOR MUSCLE MEDIAL 5 UN
     Route: 030
     Dates: start: 20190220, end: 20190220

REACTIONS (4)
  - Pain [Unknown]
  - Swelling [Unknown]
  - Brow ptosis [Unknown]
  - Therapeutic product effect incomplete [Unknown]
